FAERS Safety Report 9668343 (Version 2)
Quarter: 2013Q4

REPORT INFORMATION
  Report Type: Spontaneous
  Country: US (occurrence: US)
  Receive Date: 20131104
  Receipt Date: 20131104
  Transmission Date: 20140711
  Serious: Yes (Death, Hospitalization, Other)
  Sender: FDA-Public Use
  Company Number: US-GILEAD-2013-0082610

PATIENT
  Sex: Male

DRUGS (7)
  1. RANEXA [Suspect]
     Indication: ANGINA PECTORIS
     Route: 048
  2. SIMVASTATIN [Concomitant]
     Dosage: 20 MG, QD
  3. PLAVIX [Concomitant]
     Dosage: 75 MG, QD
  4. IMDUR [Concomitant]
     Dosage: 20 MG, BID
  5. LISINOPRIL [Concomitant]
     Dosage: 2.5 MG, QD
  6. METOPROLOL [Concomitant]
     Dosage: 50 MG, QD
  7. ASA [Concomitant]
     Dosage: 81 MG, QD

REACTIONS (3)
  - Renal failure [Fatal]
  - Blood creatinine abnormal [Unknown]
  - Acute myocardial infarction [Unknown]
